FAERS Safety Report 6272265-5 (Version None)
Quarter: 2009Q3

REPORT INFORMATION
  Report Type: 
  Country: None (occurrence: None)
  Receive Date: 20090717
  Receipt Date: 20090610
  Transmission Date: 20100115
  Serious: Yes (Death, Other)
  Sender: FDA-Public Use
  Company Number: GB-PFIZER INC-2009223167

PATIENT
  Age: 63 Year
  Sex: Male

DRUGS (4)
  1. GABAPENTIN [Suspect]
     Dosage: UNK
     Route: 048
  2. BUPIVACAINE HCL [Suspect]
     Dosage: 13 ML, 1X/DAY
     Route: 008
  3. MORPHINE SULFATE [Suspect]
     Indication: NEURALGIA
     Dosage: 10 MG, UNK
     Route: 048
  4. CATAPRES [Suspect]
     Indication: NEURALGIA
     Dosage: 450 UG, UNK
     Route: 008

REACTIONS (2)
  - DEATH [None]
  - DRUG INEFFECTIVE [None]
